FAERS Safety Report 6616954-9 (Version None)
Quarter: 2010Q1

REPORT INFORMATION
  Report Type: 
  Country: None (occurrence: None)
  Receive Date: 20100301
  Receipt Date: 20100217
  Transmission Date: 20100710
  Serious: Yes (Death)
  Sender: FDA-Public Use
  Company Number: 515163

PATIENT
  Age: 74 Year
  Sex: Male

DRUGS (5)
  1. BLEOMYCIN SULFATE [Suspect]
     Indication: MULTIPLE MYELOMA
  2. DACARBAZINE [Suspect]
     Indication: MULTIPLE MYELOMA
  3. VINCRISTINE SULFATE [Suspect]
     Indication: MULTIPLE MYELOMA
  4. DEXAMETHASONE [Suspect]
     Indication: MULTIPLE MYELOMA
  5. (DOXORUBICIN) [Suspect]
     Indication: MULTIPLE MYELOMA

REACTIONS (1)
  - B PRECURSOR TYPE ACUTE LEUKAEMIA [None]
